FAERS Safety Report 10888514 (Version 2)
Quarter: 2015Q1

REPORT INFORMATION
  Report Type: Spontaneous
  Country: CA (occurrence: CA)
  Receive Date: 20150305
  Receipt Date: 20150320
  Transmission Date: 20150721
  Serious: Yes (Other)
  Sender: FDA-Public Use
  Company Number: CA-GILEAD-2015-0139007

PATIENT
  Age: 34 Year
  Sex: Male
  Weight: 73.5 kg

DRUGS (4)
  1. RIBAVIRIN. [Suspect]
     Active Substance: RIBAVIRIN
     Indication: HEPATITIS C
     Dosage: 1000 MG, UNK
     Route: 048
     Dates: start: 20141011, end: 20150102
  2. PEGYLATED INTERFERON NOS [Suspect]
     Active Substance: PEGINTERFERON ALFA-2A OR PEGINTERFERON ALFA-2B OR PEGINTERFERON BETA-1A OR PEGINTERFERON LAMBDA-1A
     Indication: HEPATITIS C
     Dosage: 180 ?G, UNK
     Route: 058
     Dates: start: 20141010, end: 20141226
  3. SOVALDI [Suspect]
     Active Substance: SOFOSBUVIR
     Indication: HEPATITIS C
     Dosage: 400 MG, UNK
     Route: 048
     Dates: start: 20141011, end: 20150102
  4. ZOPLICONE [Suspect]
     Active Substance: ZOPICLONE
     Indication: INSOMNIA
     Route: 065

REACTIONS (11)
  - Weight decreased [Unknown]
  - Decreased appetite [Unknown]
  - Depression [Recovering/Resolving]
  - Bedridden [Recovered/Resolved]
  - Irritability [Recovering/Resolving]
  - Affect lability [Unknown]
  - Anxiety [Recovering/Resolving]
  - Insomnia [Recovered/Resolved]
  - Influenza like illness [Unknown]
  - Dry mouth [Unknown]
  - Pruritus [Unknown]

NARRATIVE: CASE EVENT DATE: 201410
